FAERS Safety Report 18826391 (Version 1)
Quarter: 2021Q1

REPORT INFORMATION
  Report Type: Spontaneous
  Country: US (occurrence: US)
  Receive Date: 20210202
  Receipt Date: 20210202
  Transmission Date: 20210419
  Serious: No
  Sender: FDA-Public Use
  Company Number: US-TEVA-2021-US-1874927

PATIENT
  Sex: Female

DRUGS (2)
  1. AJOVY [Suspect]
     Active Substance: FREMANEZUMAB-VFRM
     Indication: MIGRAINE PROPHYLAXIS
     Route: 065
  2. AJOVY [Suspect]
     Active Substance: FREMANEZUMAB-VFRM

REACTIONS (16)
  - Somnolence [Unknown]
  - Sluggishness [Unknown]
  - Diarrhoea [Unknown]
  - Pain [Unknown]
  - Sensitivity to weather change [Unknown]
  - Asthenia [Unknown]
  - Nausea [Unknown]
  - Hypersomnia [Unknown]
  - Constipation [Unknown]
  - Anxiety [Unknown]
  - Weight decreased [Unknown]
  - Therapeutic response unexpected [Unknown]
  - Therapeutic response shortened [Unknown]
  - Migraine [Unknown]
  - Abdominal pain [Unknown]
  - Influenza like illness [Unknown]
